FAERS Safety Report 9787002 (Version 2)
Quarter: 2013Q4

REPORT INFORMATION
  Report Type: Spontaneous
  Country: IT (occurrence: IT)
  Receive Date: 20131227
  Receipt Date: 20131227
  Transmission Date: 20140711
  Serious: Yes (Hospitalization)
  Sender: FDA-Public Use
  Company Number: PHHY2013IT146682

PATIENT
  Age: 5 Year
  Sex: Female

DRUGS (1)
  1. CITALOPRAM [Suspect]
     Dosage: 10 DRP, ONCE/SINGLE
     Route: 048
     Dates: start: 20130204, end: 20130204

REACTIONS (2)
  - Agitation [Recovered/Resolved]
  - Medication error [Recovered/Resolved]
